FAERS Safety Report 19812173 (Version 3)
Quarter: 2022Q2

REPORT INFORMATION
  Report Type: Report from Study
  Country: US (occurrence: US)
  Receive Date: 20210909
  Receipt Date: 20220419
  Transmission Date: 20220721
  Serious: Yes (Other)
  Sender: FDA-Public Use
  Company Number: US-KYOWAKIRIN-2021BKK015177

PATIENT

DRUGS (15)
  1. CRYSVITA [Suspect]
     Active Substance: BUROSUMAB-TWZA
     Indication: Product used for unknown indication
     Dosage: 60 MG, EVERY 28 DAYS
     Route: 058
     Dates: start: 20210807, end: 20210807
  2. CRYSVITA [Suspect]
     Active Substance: BUROSUMAB-TWZA
     Dosage: 60 MG, 2 ML INJECTION EVERY 28 DAYS
     Route: 058
     Dates: start: 201908, end: 202110
  3. CRYSVITA [Suspect]
     Active Substance: BUROSUMAB-TWZA
     Dosage: 45 MG, 1.5ML EVERY 28 DAYS
     Route: 058
     Dates: start: 202111
  4. JANUMET [Concomitant]
     Active Substance: METFORMIN HYDROCHLORIDE\SITAGLIPTIN PHOSPHATE
     Indication: Product used for unknown indication
     Dosage: 1000 2X/DAY
     Route: 065
  5. GLIPIZIDE [Concomitant]
     Active Substance: GLIPIZIDE
     Indication: Product used for unknown indication
     Dosage: 2.5 MG 1/DAY
     Route: 065
  6. ROSUVASTATIN [Concomitant]
     Active Substance: ROSUVASTATIN
     Indication: Product used for unknown indication
     Dosage: 5 MG EVERY OTHER DAY
     Route: 065
  7. LISINOPRIL [Concomitant]
     Active Substance: LISINOPRIL
     Indication: Product used for unknown indication
     Dosage: 5 MG 1/DAY
     Route: 065
  8. VYVANSE [Concomitant]
     Active Substance: LISDEXAMFETAMINE DIMESYLATE
     Indication: Product used for unknown indication
     Dosage: 70 MG 1/DAY
     Route: 065
  9. MELOXICAM [Concomitant]
     Active Substance: MELOXICAM
     Indication: Product used for unknown indication
     Dosage: UNK, 1/DAY
     Route: 065
  10. PREDNISONE [Concomitant]
     Active Substance: PREDNISONE
     Indication: Intervertebral disc protrusion
     Dosage: 20 MG/DAY, FOR 3 DAYS
     Route: 065
     Dates: start: 20210807, end: 20210809
  11. DIAZEPAM [Concomitant]
     Active Substance: DIAZEPAM
     Indication: Intervertebral disc protrusion
     Dosage: 8MG/DAY FOR 30 DAYS
     Route: 065
     Dates: start: 20210807, end: 20210905
  12. GABAPENTIN [Concomitant]
     Active Substance: GABAPENTIN
     Indication: Intervertebral disc protrusion
     Dosage: 900 MG/DAY
     Route: 065
     Dates: start: 20210807
  13. HYDROCODONE [Concomitant]
     Active Substance: HYDROCODONE
     Indication: Intervertebral disc protrusion
     Dosage: 40 MG, QD/DAY
     Route: 065
     Dates: start: 20210807
  14. CYCLOBENZAPRINE [Concomitant]
     Active Substance: CYCLOBENZAPRINE
     Indication: Intervertebral disc protrusion
     Dosage: 15 MG/DAY
     Route: 065
     Dates: start: 20210807
  15. CORTISONE [Concomitant]
     Active Substance: CORTISONE
     Indication: Intervertebral disc protrusion
     Dosage: UNK
     Route: 065

REACTIONS (3)
  - Intervertebral disc operation [Recovered/Resolved]
  - SARS-CoV-2 test positive [Recovered/Resolved]
  - Off label use [Unknown]

NARRATIVE: CASE EVENT DATE: 20210808
